FAERS Safety Report 9720851 (Version 1)
Quarter: 2013Q4

REPORT INFORMATION
  Report Type: Spontaneous
  Country: JP (occurrence: JP)
  Receive Date: 20131129
  Receipt Date: 20131129
  Transmission Date: 20140711
  Serious: Yes (Death, Other)
  Sender: FDA-Public Use
  Company Number: JP-ELI_LILLY_AND_COMPANY-JP201311007696

PATIENT
  Age: 70 Year
  Sex: Male

DRUGS (3)
  1. ALIMTA [Suspect]
     Indication: NON-SMALL CELL LUNG CANCER
     Dosage: 500 MG/M2, UNK
     Route: 042
     Dates: start: 20120927, end: 20130608
  2. FOLIC ACID [Concomitant]
     Dosage: 0.5 MG, UNK
     Route: 048
     Dates: start: 20120920, end: 20130630
  3. VITAMIN B12                        /00056201/ [Concomitant]
     Dosage: 1 MG, UNK
     Route: 030
     Dates: start: 20120920

REACTIONS (3)
  - Death [Fatal]
  - Metastases to the mediastinum [Unknown]
  - Malignant neoplasm progression [Unknown]
